FAERS Safety Report 21049229 (Version 1)
Quarter: 2022Q3

REPORT INFORMATION
  Report Type: Spontaneous
  Country: CN (occurrence: CN)
  Receive Date: 20220706
  Receipt Date: 20220706
  Transmission Date: 20221027
  Serious: Yes (Hospitalization, Other)
  Sender: FDA-Public Use
  Company Number: CN-AMGEN-CHNSP2022111292

PATIENT
  Age: 63 Year
  Sex: Male
  Weight: 95 kg

DRUGS (1)
  1. REPATHA [Suspect]
     Active Substance: EVOLOCUMAB
     Indication: Low density lipoprotein increased
     Dosage: 1 MILLILITER
     Route: 058
     Dates: start: 20220316, end: 20220316

REACTIONS (7)
  - Purpura [Recovering/Resolving]
  - Skin haemorrhage [Recovering/Resolving]
  - Arteriosclerosis coronary artery [Recovering/Resolving]
  - Angina pectoris [Recovering/Resolving]
  - Vitamin D deficiency [Recovering/Resolving]
  - Chronic gastritis [Recovering/Resolving]
  - Rash [Recovering/Resolving]

NARRATIVE: CASE EVENT DATE: 20220316
